FAERS Safety Report 16924911 (Version 1)
Quarter: 2019Q4

REPORT INFORMATION
  Report Type: Spontaneous
  Country: US (occurrence: US)
  Receive Date: 20191015
  Receipt Date: 20191015
  Transmission Date: 20200122
  Serious: No
  Sender: FDA-Public Use
  Company Number: None

PATIENT

DRUGS (2)
  1. DOBUTAMINE PREMIX INFUSION [Suspect]
     Active Substance: DOBUTAMINE HYDROCHLORIDE
  2. DOBUTAMINE PREMIX INFUSION [Suspect]
     Active Substance: DOBUTAMINE HYDROCHLORIDE

REACTIONS (1)
  - Product packaging confusion [None]
